FAERS Safety Report 17623079 (Version 1)
Quarter: 2020Q2

REPORT INFORMATION
  Report Type: Report from Study
  Country: US (occurrence: US)
  Receive Date: 20200403
  Receipt Date: 20200403
  Transmission Date: 20200713
  Serious: Yes (Death)
  Sender: FDA-Public Use
  Company Number: US-ASTRAZENECA-2020SE45337

PATIENT
  Age: 31313 Day
  Sex: Female

DRUGS (10)
  1. PANTOPRAZOLE [Concomitant]
     Active Substance: PANTOPRAZOLE
  2. METOPROLOL. [Concomitant]
     Active Substance: METOPROLOL
  3. BENZONATATE. [Concomitant]
     Active Substance: BENZONATATE
  4. PRAVASTATIN. [Concomitant]
     Active Substance: PRAVASTATIN
  5. TAGRISSO [Suspect]
     Active Substance: OSIMERTINIB
     Indication: LUNG CARCINOMA CELL TYPE UNSPECIFIED STAGE 0
     Route: 048
  6. ATROVENT [Concomitant]
     Active Substance: IPRATROPIUM BROMIDE
  7. FEXOFENADINE [Concomitant]
     Active Substance: FEXOFENADINE HYDROCHLORIDE
  8. NORCO [Concomitant]
     Active Substance: ACETAMINOPHEN\HYDROCODONE BITARTRATE
  9. DULOXETINE. [Concomitant]
     Active Substance: DULOXETINE
  10. BENAZEPRIL [Concomitant]
     Active Substance: BENAZEPRIL HYDROCHLORIDE

REACTIONS (1)
  - Death [Fatal]

NARRATIVE: CASE EVENT DATE: 20200302
